FAERS Safety Report 15882907 (Version 7)
Quarter: 2019Q2

REPORT INFORMATION
  Report Type: Spontaneous
  Country: CA (occurrence: CA)
  Receive Date: 20190129
  Receipt Date: 20190627
  Transmission Date: 20190711
  Serious: Yes (Other)
  Sender: FDA-Public Use
  Company Number: CA-CELLTRION INC.-2018CA025154

PATIENT

DRUGS (6)
  1. RESTORALAX [Concomitant]
     Active Substance: POLYETHYLENE GLYCOL 3350
     Dosage: 1-2 CAPSULE EVERY DAY
  2. INFLECTRA [Suspect]
     Active Substance: INFLIXIMAB-DYYB
     Dosage: 275 MG, EVERY 2, 6 WEEKS, THEN EVERY 8 WEEKS
     Route: 042
     Dates: start: 20190129, end: 20190129
  3. APO-INDAPAMIDE [Concomitant]
     Active Substance: INDAPAMIDE
     Dosage: 2.5 MG, EVERY 2-3 DAYS
     Route: 048
  4. INFLECTRA [Suspect]
     Active Substance: INFLIXIMAB-DYYB
     Dosage: 275 MG, EVERY 2, 6 WEEKS, THEN EVERY 8 WEEKS
     Route: 042
     Dates: start: 20190102
  5. INFLECTRA [Suspect]
     Active Substance: INFLIXIMAB-DYYB
     Dosage: 275 MG, EVERY 2, 6 WEEKS, THEN EVERY 8 WEEKS
     Route: 042
     Dates: start: 20190102
  6. INFLECTRA [Suspect]
     Active Substance: INFLIXIMAB-DYYB
     Indication: CROHN^S DISEASE
     Dosage: 275 MG, EVERY 2, 6 WEEKS, THEN EVERY 8 WEEKS
     Route: 042
     Dates: start: 20181220

REACTIONS (24)
  - Chest discomfort [Recovered/Resolved]
  - Constipation [Not Recovered/Not Resolved]
  - Muscle spasms [Unknown]
  - Rash pruritic [Not Recovered/Not Resolved]
  - Chest pain [Recovered/Resolved]
  - Asthenia [Unknown]
  - Abdominal rigidity [Unknown]
  - Cardiac flutter [Recovered/Resolved]
  - Drug ineffective [Unknown]
  - Rash macular [Not Recovered/Not Resolved]
  - Abdominal discomfort [Not Recovered/Not Resolved]
  - Feeling hot [Unknown]
  - Haemorrhoids [Unknown]
  - Headache [Not Recovered/Not Resolved]
  - Syncope [Unknown]
  - C-reactive protein increased [Unknown]
  - Rash [Not Recovered/Not Resolved]
  - Blood pressure increased [Recovering/Resolving]
  - Flushing [Not Recovered/Not Resolved]
  - Malaise [Unknown]
  - Psoriasis [Not Recovered/Not Resolved]
  - Insomnia [Unknown]
  - Pain [Unknown]
  - Heart rate increased [Recovering/Resolving]

NARRATIVE: CASE EVENT DATE: 20181220
